FAERS Safety Report 8596779-8 (Version None)
Quarter: 2012Q3

REPORT INFORMATION
  Report Type: 
  Country: None (occurrence: None)
  Receive Date: 20120815
  Receipt Date: 20120807
  Transmission Date: 20120928
  Serious: Yes (Death)
  Sender: FDA-Public Use
  Company Number: IE-COVIDIEN/TYCO HEALTHCARE/MALLINCKRODT-T201203030

PATIENT
  Age: 18 Year

DRUGS (2)
  1. MEPERIDINE HCL [Suspect]
     Dosage: UNK
  2. PHENELZINE SULFATE [Suspect]
     Dosage: UNK

REACTIONS (1)
  - SEROTONIN SYNDROME [None]
